FAERS Safety Report 12644192 (Version 4)
Quarter: 2020Q1

REPORT INFORMATION
  Report Type: Report from Study
  Country: ES (occurrence: ES)
  Receive Date: 20160811
  Receipt Date: 20200211
  Transmission Date: 20200409
  Serious: Yes (Death)
  Sender: FDA-Public Use
  Company Number: ES-ROCHE-1779081

PATIENT
  Age: 50 Year
  Sex: Female

DRUGS (2)
  1. COBIMETINIB. [Suspect]
     Active Substance: COBIMETINIB
     Indication: MALIGNANT MELANOMA
     Dosage: MOST RECENT DOSE PRIOR TO THE EVENT: 14/JUN/2016
     Route: 048
     Dates: start: 20151210, end: 20160614
  2. VEMURAFENIB. [Suspect]
     Active Substance: VEMURAFENIB
     Indication: MALIGNANT MELANOMA
     Dosage: MOST RECENT DOSE PRIOR TO THE EVENT: 14/JUN/2016
     Route: 048
     Dates: start: 20151210, end: 20160614

REACTIONS (2)
  - Chorioretinopathy [Fatal]
  - Visual impairment [Fatal]

NARRATIVE: CASE EVENT DATE: 20160614
